FAERS Safety Report 14089413 (Version 1)
Quarter: 2017Q4

REPORT INFORMATION
  Report Type: Spontaneous
  Country: FR (occurrence: FR)
  Receive Date: 20171014
  Receipt Date: 20171014
  Transmission Date: 20180321
  Serious: Yes (Other)
  Sender: FDA-Public Use
  Company Number: FR-MERCK KGAA-2030092

PATIENT
  Sex: Female

DRUGS (2)
  1. NOVOTHYROX [Suspect]
     Active Substance: LEVOTHYROXINE SODIUM
     Indication: AUTOIMMUNE THYROIDITIS
  2. LEVOTHYROXINE SODIUM. [Suspect]
     Active Substance: LEVOTHYROXINE SODIUM

REACTIONS (8)
  - Loss of personal independence in daily activities [Unknown]
  - Dysstasia [Unknown]
  - Thyroid function test abnormal [Unknown]
  - Gait disturbance [Unknown]
  - Weight increased [Unknown]
  - Vertigo [Unknown]
  - Somnolence [Unknown]
  - Pain [Recovering/Resolving]
